FAERS Safety Report 9803456 (Version 1)
Quarter: 2014Q1

REPORT INFORMATION
  Report Type: Spontaneous
  Country: US (occurrence: US)
  Receive Date: 20140108
  Receipt Date: 20140108
  Transmission Date: 20141002
  Serious: Yes (Hospitalization, Other)
  Sender: FDA-Public Use
  Company Number: US-SA-2014SA001975

PATIENT
  Age: 62 Year
  Sex: Male

DRUGS (4)
  1. LANTUS SOLOSTAR [Suspect]
     Indication: TYPE 2 DIABETES MELLITUS
     Dosage: DOSE:35 UNIT(S)
     Route: 058
     Dates: start: 201311
  2. LANTUS [Suspect]
     Route: 065
  3. NOVOLOG [Suspect]
     Route: 065
  4. SOLOSTAR [Concomitant]
     Indication: TYPE 2 DIABETES MELLITUS
     Dates: start: 201311

REACTIONS (6)
  - Myocardial infarction [Unknown]
  - Arteriosclerosis [Unknown]
  - Arrhythmia [Unknown]
  - Bacteraemia [Unknown]
  - Muscle disorder [Unknown]
  - Adverse event [Unknown]
